FAERS Safety Report 5008294-9 (Version None)
Quarter: 2006Q2

REPORT INFORMATION
  Report Type: 
  Country: None (occurrence: None)
  Receive Date: 20060523
  Receipt Date: 20060330
  Transmission Date: 20061013
  Serious: Yes (Hospitalization)
  Sender: FDA-Public Use
  Company Number: DE-AMGEN-UK174617

PATIENT
  Sex: Female
  Weight: 83 kg

DRUGS (11)
  1. NEULASTA [Suspect]
     Indication: CHEMOTHERAPY
     Route: 058
     Dates: start: 20060317, end: 20060317
  2. EPIRUBICIN [Concomitant]
     Route: 042
     Dates: start: 20060316, end: 20060316
  3. GRANISETRON  HCL [Concomitant]
     Route: 042
     Dates: start: 20060316, end: 20060316
  4. DEXAMETHASONE [Concomitant]
     Route: 042
     Dates: start: 20060316, end: 20060316
  5. DEXAMETHASONE [Concomitant]
     Route: 048
     Dates: start: 20060316, end: 20060317
  6. OFLOXACIN [Concomitant]
     Route: 048
     Dates: start: 20060323, end: 20060324
  7. OMEPRAZOLE [Concomitant]
     Route: 048
     Dates: start: 20060321, end: 20060324
  8. LEVOTHYROXIN [Concomitant]
     Route: 048
  9. NEORECORMON [Concomitant]
  10. CIPROFLOXACIN [Concomitant]
  11. PANTOPRAZOLE [Concomitant]

REACTIONS (4)
  - BACK PAIN [None]
  - HYPERHIDROSIS [None]
  - HYPERSENSITIVITY [None]
  - TACHYCARDIA [None]
